FAERS Safety Report 12771982 (Version 1)
Quarter: 2016Q3

REPORT INFORMATION
  Report Type: Spontaneous
  Country: US (occurrence: US)
  Receive Date: 20160922
  Receipt Date: 20160922
  Transmission Date: 20161109
  Serious: Yes (Death, Hospitalization, Other)
  Sender: FDA-Public Use
  Company Number: US-BAXTER-2016BAX048067

PATIENT
  Age: 8 Year
  Sex: Female

DRUGS (41)
  1. VINCRISTINE [Suspect]
     Active Substance: VINCRISTINE
     Dosage: BLOCK 2 RELAPSE CHEMOTHERAPY; DAY 1
     Route: 042
     Dates: start: 2016
  2. CYTARABINE. [Suspect]
     Active Substance: CYTARABINE
     Indication: B PRECURSOR TYPE ACUTE LEUKAEMIA
     Dosage: CONSOLIDATION PHASE OF CHEMOTHERAPY
     Route: 065
     Dates: start: 2015, end: 2015
  3. CYTARABINE. [Suspect]
     Active Substance: CYTARABINE
     Dosage: DELAYED INTENSIFICATION OF CHEMOTHERAPY
     Route: 065
     Dates: start: 2015, end: 2015
  4. ETOPOSIDE. [Suspect]
     Active Substance: ETOPOSIDE
     Indication: ACUTE LYMPHOCYTIC LEUKAEMIA RECURRENT
     Dosage: 5 DAYS OF THERAPY RECEIVED; BLOCK 2 RELAPSE CHEMOTHERAPY
     Route: 065
     Dates: start: 20160624, end: 20160628
  5. ETOPOSIDE. [Suspect]
     Active Substance: ETOPOSIDE
     Indication: PRECURSOR B-LYMPHOBLASTIC LYMPHOMA REFRACTORY
  6. METHOTREXATE. [Suspect]
     Active Substance: METHOTREXATE
     Indication: PRECURSOR B-LYMPHOBLASTIC LYMPHOMA REFRACTORY
     Dosage: HIGH DOSE METHOTREXATE; INTERIM MAINTENANCE OF CHEMOTHERAPY
     Route: 065
     Dates: start: 2015, end: 2015
  7. CYCLOPHOSPHAMIDE FOR INJECTION, USP [Suspect]
     Active Substance: CYCLOPHOSPHAMIDE
     Indication: PRECURSOR B-LYMPHOBLASTIC LYMPHOMA REFRACTORY
     Dosage: 5 DAYS OF THERAPY RECEIVED; BLOCK 2 RELAPSE CHEMOTHERAPY
     Route: 065
     Dates: start: 20160624, end: 20160628
  8. DEXAMETHASONE. [Suspect]
     Active Substance: DEXAMETHASONE
     Indication: PRECURSOR B-LYMPHOBLASTIC LYMPHOMA REFRACTORY
     Dosage: BLOCK 1/REINDUCTION OF CHEMOTHERAPY
     Route: 048
     Dates: start: 2016
  9. DEXAMETHASONE. [Suspect]
     Active Substance: DEXAMETHASONE
     Dosage: BLOCK 2 RELAPSE CHEMOTHERAPY; DAY 1
     Route: 048
     Dates: start: 2016
  10. METHOTREXATE. [Suspect]
     Active Substance: METHOTREXATE
     Dosage: BLOCK 1/REINDUCTION OF CHEMOTHERAPY
     Route: 037
     Dates: start: 2016
  11. MERCAPTOPURINE. [Suspect]
     Active Substance: MERCAPTOPURINE
     Dosage: MAINTENANCE DOSE OF CHEMOTHERAPY
     Route: 065
     Dates: start: 2015, end: 2015
  12. PEG/L-ASPARAGINASE [Suspect]
     Active Substance: PEGASPARGASE
     Dosage: BLOCK 1/REINDUCTION OF CHEMOTHERAPY
     Route: 065
     Dates: start: 2016
  13. ARA-C [Suspect]
     Active Substance: CYTARABINE
     Indication: B PRECURSOR TYPE ACUTE LEUKAEMIA
     Dosage: INDUCTION PHASE OF CHEMOTHERAPY
     Route: 037
     Dates: start: 2015, end: 2015
  14. VINCRISTINE [Suspect]
     Active Substance: VINCRISTINE
     Indication: ACUTE LYMPHOCYTIC LEUKAEMIA RECURRENT
     Dosage: CONSOLIDATION PHASE OF CHEMOTHERAPY
     Route: 065
     Dates: start: 2015, end: 2015
  15. VINCRISTINE [Suspect]
     Active Substance: VINCRISTINE
     Indication: PRECURSOR B-LYMPHOBLASTIC LYMPHOMA REFRACTORY
     Dosage: INTERIM MAINTENANCE OF CHEMOTHERAPY
     Route: 065
     Dates: start: 2015, end: 2015
  16. DEXAMETHASONE. [Suspect]
     Active Substance: DEXAMETHASONE
     Indication: ACUTE LYMPHOCYTIC LEUKAEMIA RECURRENT
     Dosage: DELAYED INTENSIFICATION OF CHEMOTHERAPY
     Route: 065
     Dates: start: 2015, end: 2015
  17. METHOTREXATE. [Suspect]
     Active Substance: METHOTREXATE
     Dosage: INTERIM MAINTENANCE OF CHEMOTHERAPY
     Route: 037
     Dates: start: 2015, end: 2015
  18. METHOTREXATE. [Suspect]
     Active Substance: METHOTREXATE
     Dosage: DELAYED INTENSIFICATION OF CHEMOTHERAPY
     Route: 037
     Dates: start: 2015, end: 2015
  19. METHOTREXATE. [Suspect]
     Active Substance: METHOTREXATE
     Dosage: MAINTENANCE PHASE OF CHEMOTHERAPY
     Route: 048
     Dates: start: 2015, end: 2015
  20. PREDNISONE. [Suspect]
     Active Substance: PREDNISONE
     Indication: B PRECURSOR TYPE ACUTE LEUKAEMIA
     Dosage: MAINTENANCE DOSE OF CHEMOTHERAPY
     Route: 065
     Dates: start: 2015, end: 2015
  21. CYCLOPHOSPHAMIDE FOR INJECTION, USP [Suspect]
     Active Substance: CYCLOPHOSPHAMIDE
     Indication: B PRECURSOR TYPE ACUTE LEUKAEMIA
     Dosage: DELAYED INTENSIFICATION OF CHEMOTHERAPY
     Route: 065
     Dates: start: 2015, end: 2015
  22. CYCLOPHOSPHAMIDE FOR INJECTION, USP [Suspect]
     Active Substance: CYCLOPHOSPHAMIDE
     Indication: ACUTE LYMPHOCYTIC LEUKAEMIA RECURRENT
     Dosage: DELAYED INTENSIFICATION OF CHEMOTHERAPY
     Route: 065
     Dates: start: 2015, end: 2015
  23. METHOTREXATE. [Suspect]
     Active Substance: METHOTREXATE
     Indication: B PRECURSOR TYPE ACUTE LEUKAEMIA
     Dosage: INDUCTION PHASE OF CHEMOTHERAPY
     Route: 037
     Dates: start: 2015, end: 2015
  24. METHOTREXATE. [Suspect]
     Active Substance: METHOTREXATE
     Dosage: MAINTENANCE PHASE OF CHEMOTHERAPY
     Route: 037
     Dates: start: 2015, end: 2015
  25. MERCAPTOPURINE. [Suspect]
     Active Substance: MERCAPTOPURINE
     Dosage: INTERIM MAINTENANCE OF CHEMOTHERAPY
     Route: 065
     Dates: start: 2015, end: 2015
  26. PEG/L-ASPARAGINASE [Suspect]
     Active Substance: PEGASPARGASE
     Indication: B PRECURSOR TYPE ACUTE LEUKAEMIA
     Dosage: INDUCTION PHASE OF CHEMOTHERAPY
     Route: 065
     Dates: start: 2015, end: 2015
  27. PEG/L-ASPARAGINASE [Suspect]
     Active Substance: PEGASPARGASE
     Indication: ACUTE LYMPHOCYTIC LEUKAEMIA RECURRENT
     Dosage: CONSOLIDATION PHASE OF CHEMOTHERAPY
     Route: 065
     Dates: start: 2015, end: 2015
  28. DOXORUBICIN [Suspect]
     Active Substance: DOXORUBICIN
     Indication: B PRECURSOR TYPE ACUTE LEUKAEMIA
     Dosage: DELAYED INTENSIFICATION OF CHEMOTHERAPY
     Route: 065
     Dates: start: 2015, end: 2015
  29. DAUNORUBICIN [Suspect]
     Active Substance: DAUNORUBICIN
     Indication: B PRECURSOR TYPE ACUTE LEUKAEMIA
     Route: 065
     Dates: start: 2015, end: 2015
  30. VINCRISTINE [Suspect]
     Active Substance: VINCRISTINE
     Dosage: DELAYED INTENSIFICATION OF CHEMOTHERAPY
     Route: 065
     Dates: start: 2015, end: 2015
  31. VINCRISTINE [Suspect]
     Active Substance: VINCRISTINE
     Dosage: MAINTENANCE DOSE OF CHEMOTHERAPY
     Route: 065
     Dates: start: 2015, end: 2015
  32. VINCRISTINE [Suspect]
     Active Substance: VINCRISTINE
     Dosage: BLOCK 1/REINDUCTION OF CHEMOTHERAPY
     Route: 042
     Dates: start: 2016
  33. DEXAMETHASONE. [Suspect]
     Active Substance: DEXAMETHASONE
     Indication: B PRECURSOR TYPE ACUTE LEUKAEMIA
     Dosage: INDUCTION PHASE OF CHEMOTHERAPY
     Route: 065
     Dates: start: 2015, end: 2015
  34. VINCRISTINE [Suspect]
     Active Substance: VINCRISTINE
     Indication: B PRECURSOR TYPE ACUTE LEUKAEMIA
     Dosage: INDUCTION PHASE OF CHEMOTHERAPY
     Route: 065
     Dates: start: 2015, end: 2015
  35. METHOTREXATE. [Suspect]
     Active Substance: METHOTREXATE
     Indication: ACUTE LYMPHOCYTIC LEUKAEMIA RECURRENT
     Dosage: CONSOLIDATION PHASE OF CHEMOTHERAPY
     Route: 037
     Dates: start: 2015, end: 2015
  36. METHOTREXATE. [Suspect]
     Active Substance: METHOTREXATE
     Dosage: BLOCK 2 RELAPSE CHEMOTHERAPY
     Route: 037
     Dates: start: 2016
  37. PEG/L-ASPARAGINASE [Suspect]
     Active Substance: PEGASPARGASE
     Indication: PRECURSOR B-LYMPHOBLASTIC LYMPHOMA REFRACTORY
     Dosage: DELAYED INTENSIFICATION OF CHEMOTHERAPY
     Route: 065
     Dates: start: 2015, end: 2015
  38. THIOGUANINE [Suspect]
     Active Substance: THIOGUANINE
     Indication: B PRECURSOR TYPE ACUTE LEUKAEMIA
     Dosage: DELAYED INTENSIFICATION OF CHEMOTHERAPY
     Route: 065
     Dates: start: 2015, end: 2015
  39. MITOXANTRONE [Suspect]
     Active Substance: MITOXANTRONE HYDROCHLORIDE
     Indication: PRECURSOR B-LYMPHOBLASTIC LYMPHOMA REFRACTORY
  40. MERCAPTOPURINE. [Suspect]
     Active Substance: MERCAPTOPURINE
     Indication: B PRECURSOR TYPE ACUTE LEUKAEMIA
     Dosage: CONSOLIDATION PHASE OF CHEMOTHERAPY
     Route: 065
     Dates: start: 2015, end: 2015
  41. MITOXANTRONE [Suspect]
     Active Substance: MITOXANTRONE HYDROCHLORIDE
     Indication: ACUTE LYMPHOCYTIC LEUKAEMIA RECURRENT
     Dosage: BLOCK 1/REINDUCTION OF CHEMOTHERAPY
     Route: 065
     Dates: start: 2016

REACTIONS (13)
  - Infection reactivation [Unknown]
  - Precursor B-lymphoblastic lymphoma refractory [Unknown]
  - Viraemia [Unknown]
  - Acute lymphocytic leukaemia recurrent [Unknown]
  - Death [Fatal]
  - Therapy non-responder [Unknown]
  - Oral herpes [Unknown]
  - Streptococcal bacteraemia [Unknown]
  - Pericardial effusion [Unknown]
  - Clostridium bacteraemia [Unknown]
  - Colitis [Unknown]
  - Thrombocytopenia [Unknown]
  - Adenovirus infection [Unknown]

NARRATIVE: CASE EVENT DATE: 20160422
